FAERS Safety Report 22645603 (Version 1)
Quarter: 2023Q2

REPORT INFORMATION
  Report Type: Spontaneous
  Country: US (occurrence: US)
  Receive Date: 20230627
  Receipt Date: 20230627
  Transmission Date: 20230721
  Serious: Yes (Hospitalization)
  Sender: FDA-Public Use
  Company Number: US-PFIZER INC-PV202300110099

PATIENT
  Age: 56 Year
  Sex: Male
  Weight: 81.6 kg

DRUGS (2)
  1. AZITHROMYCIN [Suspect]
     Active Substance: AZITHROMYCIN
     Indication: Pneumonia
     Dosage: UNK
  2. PROVENTIL HFA [SALBUTAMOL] [Concomitant]
     Indication: Chronic obstructive pulmonary disease
     Dosage: 18 G, AS NEEDED (PRN)
     Route: 048
     Dates: start: 2010

REACTIONS (1)
  - Drug ineffective [Recovered/Resolved]

NARRATIVE: CASE EVENT DATE: 20221223
